FAERS Safety Report 13578306 (Version 4)
Quarter: 2017Q3

REPORT INFORMATION
  Report Type: Spontaneous
  Country: US (occurrence: US)
  Receive Date: 20170524
  Receipt Date: 20170801
  Transmission Date: 20171127
  Serious: Yes (Other)
  Sender: FDA-Public Use
  Company Number: US-TEVA-771241USA

PATIENT
  Sex: Male

DRUGS (5)
  1. CARBIDOPA AND LEVODOPA [Suspect]
     Active Substance: CARBIDOPA\LEVODOPA
     Dosage: 25 MG/100 MG, INCREASED TO ONE AND A HALF PILLS FOUR TIMES A DAY
     Route: 065
     Dates: start: 201703, end: 2017
  2. CARBIDOPA AND LEVODOPA [Suspect]
     Active Substance: CARBIDOPA\LEVODOPA
     Dosage: 25 MG/100 MG, THREE PILLS A DAY
     Route: 065
     Dates: start: 2017
  3. CARBIDOPA AND LEVODOPA [Suspect]
     Active Substance: CARBIDOPA\LEVODOPA
     Dosage: 25 MG/100 MG, REDUCED HIS DOSAGE TO TWICE A DAY
     Route: 065
  4. NUVIGIL [Concomitant]
     Active Substance: ARMODAFINIL
  5. CARBIDOPA AND LEVODOPA [Suspect]
     Active Substance: CARBIDOPA\LEVODOPA
     Indication: PARKINSON^S DISEASE
     Dosage: 25 MG/100 MG, THREE PILLS A DAY
     Route: 065
     Dates: start: 201407

REACTIONS (20)
  - Chronic lymphocytic leukaemia [Unknown]
  - Mass [Not Recovered/Not Resolved]
  - Facial bones fracture [Unknown]
  - Physical disability [Unknown]
  - Scar [Unknown]
  - Adverse event [Unknown]
  - Parkinson^s disease [Recovered/Resolved]
  - Muscle rigidity [Unknown]
  - Tremor [Unknown]
  - Limb injury [Unknown]
  - Fall [Unknown]
  - Musculoskeletal stiffness [Unknown]
  - Memory impairment [Unknown]
  - Drug effect delayed [Unknown]
  - Drug effect variable [Unknown]
  - Adverse event [Recovered/Resolved]
  - Drug dose omission [Unknown]
  - Transurethral prostatectomy [Unknown]
  - Drug ineffective [Unknown]
  - Drug ineffective [Recovered/Resolved]

NARRATIVE: CASE EVENT DATE: 20161014
